FAERS Safety Report 6519979-7 (Version None)
Quarter: 2009Q4

REPORT INFORMATION
  Report Type: 
  Country: None (occurrence: None)
  Receive Date: 20091229
  Receipt Date: 20091217
  Transmission Date: 20100525
  Serious: Yes (Other)
  Sender: FDA-Public Use
  Company Number: US-PFIZER INC-2009300032

PATIENT
  Sex: Female
  Weight: 77.11 kg

DRUGS (2)
  1. CHANTIX [Suspect]
     Indication: SMOKING CESSATION THERAPY
     Dosage: UNK
     Route: 048
  2. TYLENOL (CAPLET) [Concomitant]

REACTIONS (9)
  - AGGRESSION [None]
  - BALANCE DISORDER [None]
  - BLOOD PRESSURE FLUCTUATION [None]
  - DECREASED APPETITE [None]
  - DIZZINESS [None]
  - HOSTILITY [None]
  - INSOMNIA [None]
  - PANIC ATTACK [None]
  - SUICIDAL IDEATION [None]
